FAERS Safety Report 6120718-2 (Version None)
Quarter: 2009Q1

REPORT INFORMATION
  Report Type: 
  Country: None (occurrence: None)
  Receive Date: 20090317
  Receipt Date: 20090303
  Transmission Date: 20090719
  Serious: Yes (Other)
  Sender: FDA-Public Use
  Company Number: US-ROCHE-595275

PATIENT
  Sex: Female
  Weight: 84.8 kg

DRUGS (1)
  1. CAPECITABINE [Suspect]
     Indication: BREAST CANCER
     Route: 048

REACTIONS (3)
  - DISEASE PROGRESSION [None]
  - ERYTHEMA [None]
  - PAIN IN EXTREMITY [None]
